FAERS Safety Report 7183402-2 (Version None)
Quarter: 2010Q4

REPORT INFORMATION
  Report Type: 
  Country: None (occurrence: None)
  Receive Date: 20101220
  Receipt Date: 20101220
  Transmission Date: 20110411
  Serious: Yes (Hospitalization)
  Sender: FDA-Public Use
  Company Number: None

PATIENT
  Age: 70 Year
  Sex: Female
  Weight: 87.8 kg

DRUGS (5)
  1. LISINOPRIL [Suspect]
     Indication: HYPERTENSION
     Dosage: 10 MG DAILY PO
     Route: 048
  2. ZOCOR [Concomitant]
  3. ALENDRONATE [Concomitant]
  4. IBUPROFEN [Concomitant]
  5. ASPIRIN [Concomitant]

REACTIONS (1)
  - ANGIOEDEMA [None]
